FAERS Safety Report 8543470-X (Version None)
Quarter: 2012Q3

REPORT INFORMATION
  Report Type: 
  Country: None (occurrence: None)
  Receive Date: 20120727
  Receipt Date: 20120724
  Transmission Date: 20120928
  Serious: Yes (Other)
  Sender: FDA-Public Use
  Company Number: PHHY2012JP044782

PATIENT

DRUGS (2)
  1. NEORAL [Suspect]
     Indication: PUSTULAR PSORIASIS
     Dosage: 100 MG, QD, BEFORE BREAKFAST
     Route: 048
     Dates: end: 20120518
  2. NEORAL [Suspect]
     Dosage: 50 MG, QD
     Route: 048

REACTIONS (2)
  - GASTROINTESTINAL PERFORATION [None]
  - ORAL ADMINISTRATION COMPLICATION [None]
